FAERS Safety Report 9188387 (Version 1)
Quarter: 2013Q1

REPORT INFORMATION
  Report Type: Spontaneous
  Country: US (occurrence: US)
  Receive Date: 20130325
  Receipt Date: 20130325
  Transmission Date: 20140127
  Serious: No
  Sender: FDA-Public Use
  Company Number: US-BAYER-2013-036736

PATIENT
  Age: 70 Year
  Sex: Female

DRUGS (3)
  1. FINACEA [Suspect]
     Indication: ROSACEA
     Dosage: UNK
     Dates: start: 20130218, end: 20130311
  2. FINACEA [Suspect]
     Indication: ROSACEA
     Dosage: UNK
     Dates: start: 20130318
  3. SIMVASTATIN [Concomitant]
     Indication: BLOOD CHOLESTEROL INCREASED

REACTIONS (6)
  - Burning sensation [None]
  - Paraesthesia [None]
  - Pain of skin [None]
  - Skin tightness [None]
  - Eye swelling [None]
  - Skin exfoliation [None]
